FAERS Safety Report 14102617 (Version 9)
Quarter: 2019Q4

REPORT INFORMATION
  Report Type: Report from Study
  Country: US (occurrence: US)
  Receive Date: 20171018
  Receipt Date: 20191020
  Transmission Date: 20200122
  Serious: Yes (Other)
  Sender: FDA-Public Use
  Company Number: PHEH2017US033847

PATIENT
  Age: 70 Year
  Sex: Female

DRUGS (1)
  1. AFINITOR [Suspect]
     Active Substance: EVEROLIMUS
     Indication: ANGIOMYOLIPOMA
     Dosage: 10 MG, QD
     Route: 048
     Dates: start: 20170823, end: 20190916

REACTIONS (9)
  - Mastoiditis [Recovering/Resolving]
  - Pruritus [Recovered/Resolved]
  - Renal mass [Unknown]
  - Joint swelling [Recovering/Resolving]
  - White blood cell count decreased [Not Recovered/Not Resolved]
  - Urticaria [Recovered/Resolved]
  - Cystitis [Recovering/Resolving]
  - Tumour compression [Recovering/Resolving]
  - Ear infection [Recovering/Resolving]

NARRATIVE: CASE EVENT DATE: 20170913
